FAERS Safety Report 4402815-2 (Version None)
Quarter: 2004Q3

REPORT INFORMATION
  Report Type: 
  Country: None (occurrence: None)
  Receive Date: 20040719
  Receipt Date: 20040707
  Transmission Date: 20050211
  Serious: Yes (Other)
  Sender: FDA-Public Use
  Company Number: 2004222385US

PATIENT
  Age: 43 Year
  Sex: Female

DRUGS (2)
  1. XALATAN [Suspect]
     Indication: INTRAOCULAR PRESSURE TEST
     Dosage: QD, OPHTHALMIC
     Route: 047
     Dates: start: 19990330
  2. COMPARATOR-TIMOLOL (TIMOLOL) SOLUTION, OPHTHALMIC [Suspect]
     Indication: INTRAOCULAR PRESSURE TEST
     Dosage: QD, OPHTHALMIC
     Route: 047
     Dates: start: 19990331

REACTIONS (3)
  - CHEST PAIN [None]
  - COUGH [None]
  - INFLUENZA LIKE ILLNESS [None]
